FAERS Safety Report 8021198 (Version 8)
Quarter: 2013Q3

REPORT INFORMATION
  Report Type: Spontaneous
  Country: US (occurrence: US)
  Receive Date: 20110705
  Receipt Date: 20130822
  Transmission Date: 20140515
  Serious: Yes (Hospitalization, Other)
  Sender: FDA-Public Use
  Company Number: US-ROCHE-786619

PATIENT
  Age: 34 Year
  Sex: Female
  Weight: 40.4 kg

DRUGS (3)
  1. ACCUTANE [Suspect]
     Indication: ACNE
     Route: 048
     Dates: start: 199002, end: 199008
  2. ACCUTANE [Suspect]
     Route: 048
     Dates: start: 19920221, end: 19920925
  3. DEPO-PROVERA [Concomitant]

REACTIONS (15)
  - Crohn^s disease [Unknown]
  - Intestinal obstruction [Unknown]
  - Irritable bowel syndrome [Unknown]
  - Vision blurred [Unknown]
  - Cardiac disorder [Unknown]
  - Injury [Unknown]
  - Emotional distress [Unknown]
  - Colitis ulcerative [Unknown]
  - Inflammatory bowel disease [Unknown]
  - Large intestine polyp [Unknown]
  - Depression [Unknown]
  - Blood triglycerides increased [Unknown]
  - Osteopenia [Unknown]
  - Headache [Unknown]
  - Muscle spasms [Unknown]
